FAERS Safety Report 19805005 (Version 1)
Quarter: 2021Q3

REPORT INFORMATION
  Report Type: Spontaneous
  Country: DE (occurrence: DE)
  Receive Date: 20210908
  Receipt Date: 20210908
  Transmission Date: 20211014
  Serious: Yes (Other)
  Sender: FDA-Public Use
  Company Number: DE-ASTRAZENECA-2021A710264

PATIENT
  Age: 56 Year
  Sex: Male

DRUGS (1)
  1. ACALABRUTINIB. [Suspect]
     Active Substance: ACALABRUTINIB
     Route: 048
     Dates: start: 202107

REACTIONS (4)
  - Dysgeusia [Unknown]
  - Abnormal faeces [Unknown]
  - Dyspepsia [Unknown]
  - Rash [Unknown]

NARRATIVE: CASE EVENT DATE: 202107
